FAERS Safety Report 4375288-6 (Version None)
Quarter: 2004Q2

REPORT INFORMATION
  Report Type: 
  Country: None (occurrence: None)
  Receive Date: 20040603
  Receipt Date: 20040528
  Transmission Date: 20050107
  Serious: Yes (Life-Threatening)
  Sender: FDA-Public Use
  Company Number: 200411812GDS

PATIENT
  Age: 83 Year
  Sex: Male

DRUGS (6)
  1. AVELOX [Suspect]
     Indication: BRONCHITIS
     Dosage: 400 MG, TOTAL  DAILY, ORAL
     Route: 048
     Dates: start: 20040504, end: 20040505
  2. PREDNISOLONE [Concomitant]
  3. FOSAMAX [Concomitant]
  4. IPRATROPIUM BROMIDE [Concomitant]
  5. ACETYLCYSTEINE [Concomitant]
  6. LISINOPRIL [Concomitant]

REACTIONS (5)
  - DELUSION [None]
  - DYSPNOEA [None]
  - MUSCLE CONTRACTIONS INVOLUNTARY [None]
  - POLYURIA [None]
  - RESTLESSNESS [None]
